FAERS Safety Report 24066091 (Version 1)
Quarter: 2024Q3

REPORT INFORMATION
  Report Type: Report from Study
  Country: IT (occurrence: IT)
  Receive Date: 20240709
  Receipt Date: 20240709
  Transmission Date: 20241016
  Serious: Yes (Hospitalization, Other)
  Sender: ROCHE
  Company Number: IT-ROCHE-2908413

PATIENT
  Age: 58 Year
  Sex: Female

DRUGS (2)
  1. OBINUTUZUMAB [Suspect]
     Active Substance: OBINUTUZUMAB
     Indication: Follicular lymphoma
     Dosage: SUBSEQUENT DOSES OF INDUCTION TREATMENT WAS ADMINISTERED ON 03/FEB/2020, 10/FEB/2020, 25/FEB/2020, 2
     Route: 042
     Dates: start: 20200127
  2. FILGRASTIM [Concomitant]
     Active Substance: FILGRASTIM
     Indication: Adverse event
     Dates: start: 20210511

REACTIONS (9)
  - Neutropenia [Recovered/Resolved]
  - Hyperparathyroidism [Recovered/Resolved]
  - Skin lesion [Recovered/Resolved]
  - Mucosal dryness [Recovered/Resolved]
  - Asthenia [Recovered/Resolved]
  - Constipation [Recovered/Resolved]
  - Weight decreased [Recovered/Resolved]
  - Hypercreatininaemia [Recovered/Resolved]
  - Hypercalcaemia [Recovered/Resolved]

NARRATIVE: CASE EVENT DATE: 20200420
